FAERS Safety Report 9219827 (Version 2)
Quarter: 2013Q2

REPORT INFORMATION
  Report Type: Spontaneous
  Country: US (occurrence: US)
  Receive Date: 20130409
  Receipt Date: 20130502
  Transmission Date: 20140414
  Serious: No
  Sender: FDA-Public Use
  Company Number: US-PFIZER INC-2013111308

PATIENT
  Age: 58 Year
  Sex: Female

DRUGS (8)
  1. MINOCYCLINE [Suspect]
  2. ALTACE [Suspect]
  3. MORPHINE SULFATE [Suspect]
  4. PERCOCET [Suspect]
     Dosage: 10/325
  5. PERCOCET [Suspect]
     Dosage: 5/325
  6. DEMEROL [Suspect]
  7. DILAUDID [Suspect]
  8. CHROMIUM PICOLINATE [Suspect]

REACTIONS (1)
  - Drug hypersensitivity [Unknown]
